FAERS Safety Report 7086087-9 (Version None)
Quarter: 2010Q4

REPORT INFORMATION
  Report Type: 
  Country: None (occurrence: None)
  Receive Date: 20101105
  Receipt Date: 20101101
  Transmission Date: 20110411
  Serious: Yes (Hospitalization)
  Sender: FDA-Public Use
  Company Number: A0890798A

PATIENT
  Age: 55 Year
  Sex: Male

DRUGS (1)
  1. ADVAIR DISKUS 100/50 [Suspect]
     Route: 065
     Dates: start: 20091106

REACTIONS (3)
  - HOSPITALISATION [None]
  - MALAISE [None]
  - OXYGEN SUPPLEMENTATION [None]
